FAERS Safety Report 25985561 (Version 1)
Quarter: 2025Q4

REPORT INFORMATION
  Report Type: Spontaneous
  Country: US (occurrence: US)
  Receive Date: 20251031
  Receipt Date: 20251031
  Transmission Date: 20260117
  Serious: Yes (Other)
  Sender: BRISTOL-MYERS SQUIBB COMPANY
  Company Number: US-BRISTOL-MYERS SQUIBB COMPANY-2025-146823

PATIENT
  Age: 83 Year
  Sex: Female
  Weight: 90.72 kg

DRUGS (7)
  1. ELIQUIS [Suspect]
     Active Substance: APIXABAN
     Indication: Pulmonary embolism
     Route: 048
     Dates: start: 2018
  2. ELIQUIS [Suspect]
     Active Substance: APIXABAN
     Route: 048
  3. METOPROLOL [Concomitant]
     Active Substance: METOPROLOL
     Indication: Product used for unknown indication
  4. GLIPIZIDE [Concomitant]
     Active Substance: GLIPIZIDE
     Indication: Product used for unknown indication
  5. METFORMIN [Concomitant]
     Active Substance: METFORMIN HYDROCHLORIDE
     Indication: Product used for unknown indication
  6. FARXIGA [Concomitant]
     Active Substance: DAPAGLIFLOZIN PROPANEDIOL
     Indication: Product used for unknown indication
  7. EYE DROPS [TETRYZOLINE HYDROCHLORIDE] [Concomitant]
     Indication: Glaucoma

REACTIONS (6)
  - Post procedural haemorrhage [Unknown]
  - Rash [Recovering/Resolving]
  - Cat scratch disease [Recovering/Resolving]
  - Toothache [Unknown]
  - Chronic kidney disease [Unknown]
  - Atrial fibrillation [Unknown]

NARRATIVE: CASE EVENT DATE: 20251001
